FAERS Safety Report 6387153-3 (Version None)
Quarter: 2009Q4

REPORT INFORMATION
  Report Type: 
  Country: None (occurrence: None)
  Receive Date: 20091002
  Receipt Date: 20090929
  Transmission Date: 20100525
  Serious: Yes (Death)
  Sender: FDA-Public Use
  Company Number: PHHY2009BR36492

PATIENT
  Sex: Female

DRUGS (2)
  1. EXELON [Suspect]
     Dosage: 9MG/5CM2
     Route: 062
  2. EXELON [Suspect]
     Dosage: 18MG/10CM2
     Route: 062

REACTIONS (1)
  - PNEUMONIA [None]
